FAERS Safety Report 6425509-0 (Version None)
Quarter: 2010Q1

REPORT INFORMATION
  Report Type: 
  Country: None (occurrence: None)
  Receive Date: 20091029
  Receipt Date: 20091017
  Transmission Date: 20100710
  Serious: Yes (Other)
  Sender: FDA-Public Use
  Company Number: 2009AP004222

PATIENT
  Age: 36 Year
  Sex: Female

DRUGS (5)
  1. PREDNISOLONE [Suspect]
     Indication: IMMUNOSUPPRESSION
  2. TACROLIMUS [Suspect]
     Indication: IMMUNOSUPPRESSION
  3. TAXOL [Suspect]
     Indication: CHEMOTHERAPY
  4. CARBOPLATIN [Suspect]
     Indication: CHEMOTHERAPY
  5. SIROLIMUS [Suspect]
     Indication: IMMUNOSUPPRESSION

REACTIONS (4)
  - AUTOIMMUNE HEPATITIS [None]
  - HEPATIC FAILURE [None]
  - HEPATIC NEOPLASM MALIGNANT [None]
  - LIVER TRANSPLANT REJECTION [None]
